FAERS Safety Report 5410465-4 (Version None)
Quarter: 2007Q3

REPORT INFORMATION
  Report Type: 
  Country: None (occurrence: None)
  Receive Date: 20070810
  Receipt Date: 20061226
  Transmission Date: 20080115
  Serious: No
  Sender: FDA-Public Use
  Company Number: A0633165A

PATIENT
  Age: 57 Year
  Sex: Male
  Weight: 88.6 kg

DRUGS (5)
  1. PAROXETINE HYDROCHLORIDE [Suspect]
     Indication: ATTENTION DEFICIT/HYPERACTIVITY DISORDER
     Dosage: 30MG PER DAY
     Route: 048
     Dates: start: 20030101
  2. PAROXETINE HYDROCHLORIDE [Concomitant]
     Dosage: 30MG PER DAY
     Route: 048
     Dates: start: 20061101, end: 20061201
  3. PREVACID [Concomitant]
  4. ELAVIL [Concomitant]
  5. SINEMET [Concomitant]

REACTIONS (4)
  - AGITATION [None]
  - INSOMNIA [None]
  - MUSCLE TWITCHING [None]
  - PHARMACEUTICAL PRODUCT COMPLAINT [None]
